FAERS Safety Report 5446390-2 (Version None)
Quarter: 2007Q3

REPORT INFORMATION
  Report Type: 
  Country: None (occurrence: None)
  Receive Date: 20070907
  Receipt Date: 20070828
  Transmission Date: 20080115
  Serious: Yes (Other)
  Sender: FDA-Public Use
  Company Number: JP-ROCHE-513660

PATIENT
  Age: 65 Year
  Sex: Male

DRUGS (3)
  1. PEG-INTERFERON ALFA NOS [Suspect]
     Indication: NEOPLASM PROPHYLAXIS
     Route: 065
  2. INTERFERON ALFA [Suspect]
     Indication: NEOPLASM PROPHYLAXIS
     Route: 065
     Dates: start: 20010101
  3. INTERFERON ALFA [Suspect]
     Route: 065

REACTIONS (2)
  - SJOGREN'S SYNDROME [None]
  - VITH NERVE PARALYSIS [None]
